FAERS Safety Report 5876977-4 (Version None)
Quarter: 2008Q3

REPORT INFORMATION
  Report Type: 
  Country: None (occurrence: None)
  Receive Date: 20080910
  Receipt Date: 20080829
  Transmission Date: 20090109
  Serious: Yes (Disabling)
  Sender: FDA-Public Use
  Company Number: PHHY2008IT19809

PATIENT

DRUGS (1)
  1. DEFERASIROX [Suspect]

REACTIONS (1)
  - CREATININE RENAL CLEARANCE DECREASED [None]
